FAERS Safety Report 12903627 (Version 5)
Quarter: 2017Q1

REPORT INFORMATION
  Report Type: Report from Study
  Country: CA (occurrence: CA)
  Receive Date: 20161102
  Receipt Date: 20170314
  Transmission Date: 20170428
  Serious: Yes (Other)
  Sender: FDA-Public Use
  Company Number: CA-TAKEDA-2016TUS013780

PATIENT
  Age: 34 Year
  Sex: Female

DRUGS (7)
  1. PREVACID [Concomitant]
     Active Substance: LANSOPRAZOLE
     Indication: ABDOMINAL PAIN UPPER
     Dosage: UNK
  2. VEDOLIZUMAB [Suspect]
     Active Substance: VEDOLIZUMAB
     Dosage: 300 MG, Q4WEEKS
     Route: 042
     Dates: start: 20161123
  3. CELEXA [Concomitant]
     Active Substance: CITALOPRAM HYDROBROMIDE
     Indication: POST-TRAUMATIC STRESS DISORDER
     Dosage: UNK
  4. METHYLPREDNISOLONE. [Concomitant]
     Active Substance: METHYLPREDNISOLONE
     Indication: PREMEDICATION
     Dosage: 80 MG, UNK
     Route: 042
  5. DIPHENHYDRAMINE. [Concomitant]
     Active Substance: DIPHENHYDRAMINE
     Indication: PREMEDICATION
     Dosage: 50 MG, UNK
     Route: 048
  6. ACETAMINOPHEN. [Concomitant]
     Active Substance: ACETAMINOPHEN
     Indication: PREMEDICATION
     Dosage: 650 MG, UNK
     Route: 048
  7. VEDOLIZUMAB [Suspect]
     Active Substance: VEDOLIZUMAB
     Indication: CROHN^S DISEASE
     Dosage: 300 MG, UNK
     Route: 042
     Dates: start: 20160720

REACTIONS (46)
  - Vision blurred [Unknown]
  - Diplopia [Unknown]
  - Infusion site haematoma [Unknown]
  - Diarrhoea [Unknown]
  - Palatal swelling [Recovered/Resolved]
  - Hot flush [Unknown]
  - Blindness transient [Recovered/Resolved]
  - Urinary tract infection [Not Recovered/Not Resolved]
  - Surgery [Unknown]
  - Migraine [Unknown]
  - Feeling abnormal [Unknown]
  - Constipation [Unknown]
  - Sinusitis [Recovered/Resolved]
  - Arthralgia [Unknown]
  - Mucous stools [Unknown]
  - Muscle strain [Not Recovered/Not Resolved]
  - Post procedural haemorrhage [Unknown]
  - Vomiting [Recovered/Resolved]
  - Hyperhidrosis [Unknown]
  - Cystitis [Not Recovered/Not Resolved]
  - Pyrexia [Unknown]
  - Dizziness [Unknown]
  - Gait disturbance [Unknown]
  - Mouth ulceration [Unknown]
  - Lower respiratory tract infection [Not Recovered/Not Resolved]
  - Pain in extremity [Unknown]
  - Blindness unilateral [Unknown]
  - Frequent bowel movements [Unknown]
  - Off label use [Unknown]
  - Heart rate increased [Unknown]
  - Asthenia [Recovered/Resolved]
  - Headache [Recovered/Resolved]
  - Nausea [Recovered/Resolved with Sequelae]
  - Haematochezia [Unknown]
  - Clumsiness [Unknown]
  - Hypoaesthesia [Unknown]
  - Ulcer [Unknown]
  - Chills [Unknown]
  - Abdominal pain [Recovering/Resolving]
  - Pain [Recovered/Resolved]
  - Device related infection [Recovered/Resolved]
  - Ear pain [Unknown]
  - Fatigue [Recovered/Resolved]
  - Emotional disorder [Unknown]
  - Palpitations [Unknown]
  - Nausea [Unknown]

NARRATIVE: CASE EVENT DATE: 2016
